FAERS Safety Report 7400436-0 (Version None)
Quarter: 2011Q2

REPORT INFORMATION
  Report Type: 
  Country: None (occurrence: None)
  Receive Date: 20110405
  Receipt Date: 20110405
  Transmission Date: 20111010
  Serious: Yes (Other)
  Sender: FDA-Public Use
  Company Number: None

PATIENT
  Sex: Female
  Weight: 72.5755 kg

DRUGS (1)
  1. SUBOXONE [Suspect]
     Indication: DRUG DEPENDENCE
     Dosage: 8 MG DAILY SL
     Route: 060
     Dates: start: 20110128, end: 20110303

REACTIONS (3)
  - HYPOAESTHESIA ORAL [None]
  - STOMATITIS [None]
  - AGEUSIA [None]
